FAERS Safety Report 5502211-0 (Version None)
Quarter: 2007Q4

REPORT INFORMATION
  Report Type: 
  Country: None (occurrence: None)
  Receive Date: 20071030
  Receipt Date: 20071020
  Transmission Date: 20080405
  Serious: Yes (Hospitalization)
  Sender: FDA-Public Use
  Company Number: US-ABBOTT-07P-163-0422017-00

PATIENT
  Sex: Female
  Weight: 84.898 kg

DRUGS (15)
  1. DEPAKOTE [Suspect]
     Indication: BIPOLAR DISORDER
     Route: 048
     Dates: start: 20070101, end: 20070101
  2. DEPAKOTE [Suspect]
     Route: 048
     Dates: start: 20070101
  3. DEPAKOTE [Suspect]
     Indication: BIPOLAR DISORDER
     Route: 048
     Dates: start: 19970101, end: 20070101
  4. CYCLOBENZAPRINE HCL [Suspect]
     Indication: FIBROMYALGIA
     Dates: end: 20071003
  5. ESCITALOPRAM OXALATE [Concomitant]
     Indication: DEPRESSION
     Route: 048
     Dates: start: 20070801
  6. ESCITALOPRAM OXALATE [Concomitant]
     Indication: BIPOLAR DISORDER
  7. LEVOTHYROXINE SODIUM [Concomitant]
     Indication: HYPOTHYROIDISM
     Route: 048
  8. PROPACET 100 [Concomitant]
     Indication: FIBROMYALGIA
     Route: 048
  9. PROPACET 100 [Concomitant]
     Indication: PAIN
  10. LORASTAT PLUS [Concomitant]
     Indication: FIBROMYALGIA
     Route: 048
  11. LORASTAT PLUS [Concomitant]
     Indication: PAIN
  12. ZYETIA [Concomitant]
     Indication: BLOOD CHOLESTEROL INCREASED
     Route: 048
  13. SIMVASTATIN [Concomitant]
     Indication: BLOOD CHOLESTEROL INCREASED
  14. ALPRAZOLAM [Concomitant]
     Indication: ANXIETY
  15. ALPRAZOLAM [Concomitant]
     Indication: INSOMNIA

REACTIONS (8)
  - CONFUSIONAL STATE [None]
  - DIZZINESS [None]
  - HEADACHE [None]
  - INSOMNIA [None]
  - MANIA [None]
  - PANIC ATTACK [None]
  - SOMNOLENCE [None]
  - TREMOR [None]
